FAERS Safety Report 10460383 (Version 1)
Quarter: 2014Q3

REPORT INFORMATION
  Report Type: Spontaneous
  Country: NO (occurrence: NO)
  Receive Date: 20140917
  Receipt Date: 20140917
  Transmission Date: 20150326
  Serious: Yes (Hospitalization)
  Sender: FDA-Public Use
  Company Number: NO-ASTRAZENECA-2014SE67805

PATIENT
  Age: 20849 Day
  Sex: Male

DRUGS (6)
  1. SEROQUEL [Suspect]
     Active Substance: QUETIAPINE FUMARATE
     Indication: PSYCHOTIC BEHAVIOUR
     Dosage: DAY 1: 200 MG X 2, DAY 2: 300 MG X 2, DAY 3: 200 MG X 4,PAUSED FOR 2 DAYS, REINTRODUCED 20140728
     Route: 048
     Dates: start: 20140722, end: 20140730
  2. EFEXOR DEPOT [Concomitant]
     Active Substance: VENLAFAXINE HYDROCHLORIDE
     Indication: DEPRESSION
     Route: 048
  3. NOVORAPID [Concomitant]
     Active Substance: INSULIN ASPART
     Indication: DIABETES MELLITUS
     Dosage: 2-4 IU, FOR SEVERAL YEARS
     Route: 058
  4. LANTUS [Concomitant]
     Active Substance: INSULIN GLARGINE
     Indication: DIABETES MELLITUS
     Route: 058
  5. ALBYL-E [Concomitant]
     Active Substance: ASPIRIN\MAGNESIUM OXIDE
     Indication: ANTICOAGULANT THERAPY
     Route: 048
  6. KALEORID [Concomitant]
     Active Substance: POTASSIUM CHLORIDE
     Indication: HYPOKALAEMIA
     Route: 048

REACTIONS (8)
  - Infection [Unknown]
  - Tachycardia [Unknown]
  - Hypertension [Recovered/Resolved]
  - Hyperglycaemia [Unknown]
  - Muscle rigidity [Recovering/Resolving]
  - Depressed level of consciousness [Recovering/Resolving]
  - Neuroleptic malignant syndrome [Recovering/Resolving]
  - Pyrexia [Recovered/Resolved]

NARRATIVE: CASE EVENT DATE: 20140729
